FAERS Safety Report 11663093 (Version 1)
Quarter: 2015Q4

REPORT INFORMATION
  Report Type: Spontaneous
  Country: US (occurrence: US)
  Receive Date: 20151027
  Receipt Date: 20151027
  Transmission Date: 20160304
  Serious: No
  Sender: FDA-Public Use
  Company Number: US-MEDA-2010100039

PATIENT
  Age: 49 Year
  Sex: Female

DRUGS (5)
  1. LORTAB [Concomitant]
     Active Substance: ACETAMINOPHEN\HYDROCODONE BITARTRATE
  2. DURAGESIC [Concomitant]
     Active Substance: FENTANYL
     Dosage: 12 MCG/HR
     Route: 062
  3. DILAUDID [Concomitant]
     Active Substance: HYDROMORPHONE HYDROCHLORIDE
     Dosage: 2 MG DAILY AT MINIMUM AND UP TO 5 (UNDEFINED UNIT OF MEASURE) AFTER CHEMOTHERAPY
  4. TYLOX [Concomitant]
     Active Substance: ACETAMINOPHEN\OXYCODONE HYDROCHLORIDE
  5. ONSOLIS [Suspect]
     Active Substance: FENTANYL CITRATE
     Route: 002

REACTIONS (2)
  - Drug prescribing error [Not Recovered/Not Resolved]
  - Intercepted drug dispensing error [Recovered/Resolved]

NARRATIVE: CASE EVENT DATE: 20101026
